FAERS Safety Report 4596409-6 (Version None)
Quarter: 2005Q1

REPORT INFORMATION
  Report Type: 
  Country: None (occurrence: None)
  Receive Date: 20050302
  Receipt Date: 20050217
  Transmission Date: 20050727
  Serious: Yes (Disabling)
  Sender: FDA-Public Use
  Company Number: JP-JNJFOC-20050204428

PATIENT
  Sex: Female

DRUGS (1)
  1. MONOFLOCET [Suspect]
     Route: 049

REACTIONS (3)
  - MUSCLE CONTRACTURE [None]
  - MYALGIA [None]
  - TENDONITIS [None]
